FAERS Safety Report 25338415 (Version 2)
Quarter: 2025Q2

REPORT INFORMATION
  Report Type: Report from Study
  Country: US (occurrence: US)
  Receive Date: 20250520
  Receipt Date: 20250625
  Transmission Date: 20250716
  Serious: Yes (Other)
  Sender: EISAI
  Company Number: US-Eisai-EC-2025-189223

PATIENT
  Age: 60 Year
  Sex: Male
  Weight: 79.1 kg

DRUGS (5)
  1. LENVIMA [Suspect]
     Active Substance: LENVATINIB
     Indication: Renal cell carcinoma
     Dates: start: 20241121, end: 202503
  2. LENVIMA [Suspect]
     Active Substance: LENVATINIB
     Dosage: DOSE UNKNOWN (REDUCED)
     Dates: start: 202503, end: 202504
  3. LENVIMA [Suspect]
     Active Substance: LENVATINIB
     Dosage: DOSE UNKNOWN (REDUCED)
     Dates: start: 202504
  4. LENVIMA [Suspect]
     Active Substance: LENVATINIB
     Dates: start: 20250619
  5. PEMBROLIZUMAB [Suspect]
     Active Substance: PEMBROLIZUMAB
     Indication: Renal cell carcinoma
     Dates: start: 20250108, end: 20250325

REACTIONS (4)
  - Hepatitis [Recovered/Resolved]
  - Pulmonary embolism [Recovered/Resolved]
  - Pancreatitis [Recovered/Resolved]
  - Back pain [Unknown]

NARRATIVE: CASE EVENT DATE: 20250301
